FAERS Safety Report 8454794-9 (Version None)
Quarter: 2012Q2

REPORT INFORMATION
  Report Type: 
  Country: None (occurrence: None)
  Receive Date: 20120621
  Receipt Date: 20120618
  Transmission Date: 20120825
  Serious: Yes (Hospitalization, Other)
  Sender: FDA-Public Use
  Company Number: US-JNJFOC-20120518967

PATIENT
  Sex: Female
  Weight: 111.13 kg

DRUGS (4)
  1. REMICADE [Suspect]
     Indication: CROHN'S DISEASE
     Route: 042
     Dates: start: 20110801
  2. PROZAC [Concomitant]
     Indication: DEPRESSION
     Route: 065
  3. IMURAN [Concomitant]
     Indication: CROHN'S DISEASE
     Route: 065
     Dates: start: 20080101, end: 20120401
  4. ZOLOFT [Concomitant]
     Indication: DEPRESSION
     Route: 065
     Dates: start: 20110601

REACTIONS (11)
  - ABNORMAL LOSS OF WEIGHT [None]
  - DIARRHOEA [None]
  - NAUSEA [None]
  - CROHN'S DISEASE [None]
  - PAIN [None]
  - VOMITING [None]
  - DRUG INEFFECTIVE [None]
  - ABSCESS INTESTINAL [None]
  - CONVULSION [None]
  - BLOOD POTASSIUM DECREASED [None]
  - CHOLELITHIASIS [None]
